FAERS Safety Report 12442606 (Version 1)
Quarter: 2016Q2

REPORT INFORMATION
  Report Type: Spontaneous
  Country: US (occurrence: None)
  Receive Date: 20160606
  Receipt Date: 20160606
  Transmission Date: 20160815
  Serious: No
  Sender: FDA-Public Use
  Company Number: None

PATIENT
  Age: 26 Year
  Sex: Male
  Weight: 111.59 kg

DRUGS (4)
  1. CEPHALEXIN. [Suspect]
     Active Substance: CEPHALEXIN
     Indication: INFECTION PROPHYLAXIS
     Dosage: EVERY 4 HOURS
     Route: 048
     Dates: start: 20160525, end: 20160530
  2. CLONAZEPAM. [Concomitant]
     Active Substance: CLONAZEPAM
  3. NATURE^S WAY ALIVE MEN^S ENERGY MULTI VITAMIN / MULTI MINERAL [Concomitant]
  4. QUETIAPINE. [Concomitant]
     Active Substance: QUETIAPINE

REACTIONS (3)
  - Rib fracture [None]
  - Dehydration [None]
  - Nausea [None]

NARRATIVE: CASE EVENT DATE: 20160531
